FAERS Safety Report 16120668 (Version 3)
Quarter: 2019Q3

REPORT INFORMATION
  Report Type: Report from Study
  Country: CA (occurrence: CA)
  Receive Date: 20190327
  Receipt Date: 20190930
  Transmission Date: 20191004
  Serious: No
  Sender: FDA-Public Use
  Company Number: CA-ROCHE-2097479

PATIENT
  Age: 33 Year
  Sex: Female

DRUGS (6)
  1. NORMAL SALINE [Concomitant]
     Active Substance: SODIUM CHLORIDE
  2. OCREVUS [Suspect]
     Active Substance: OCRELIZUMAB
     Indication: RELAPSING-REMITTING MULTIPLE SCLEROSIS
     Dosage: AND THEN 600 MG EVERY 6 MONTHS
     Route: 042
     Dates: start: 20180323
  3. DIPHENHYDRAMINE. [Concomitant]
     Active Substance: DIPHENHYDRAMINE
     Dosage: 50 MG PO/IV 30-60 MIN PRIOR TO EACH INFUSION
     Route: 065
     Dates: start: 20180323, end: 20180323
  4. ACETAMINOPHEN. [Concomitant]
     Active Substance: ACETAMINOPHEN
     Dosage: 1000 MG PO 30-60 MIN PRIOR TO EACH INFUSION
     Route: 048
     Dates: start: 20180323, end: 20180323
  5. METHYLPREDNISOLONE. [Concomitant]
     Active Substance: METHYLPREDNISOLONE
     Dosage: 100 MG IV 30 MIN PRIOR TO EACH INFUSION
     Route: 042
     Dates: start: 20180323, end: 20180323
  6. PREDNISONE. [Suspect]
     Active Substance: PREDNISONE
     Indication: PRODUCT USED FOR UNKNOWN INDICATION
     Route: 065

REACTIONS (12)
  - Energy increased [Recovered/Resolved]
  - Chest discomfort [Recovered/Resolved]
  - Heart rate increased [Unknown]
  - Pruritus [Not Recovered/Not Resolved]
  - Headache [Recovered/Resolved]
  - Nasopharyngitis [Unknown]
  - Pruritus [Not Recovered/Not Resolved]
  - Fatigue [Recovered/Resolved]
  - Palpitations [Unknown]
  - Infusion related reaction [Recovered/Resolved]
  - Gastric disorder [Recovered/Resolved]
  - Asthenia [Unknown]

NARRATIVE: CASE EVENT DATE: 20180323
